APPROVED DRUG PRODUCT: AN-DTPA
Active Ingredient: TECHNETIUM TC-99M PENTETATE KIT
Strength: N/A
Dosage Form/Route: INJECTABLE;INJECTION
Application: N017714 | Product #001
Applicant: JUBILANT DRAXIMAGE INC
Approved: Approved Prior to Jan 1, 1982 | RLD: No | RS: No | Type: DISCN